FAERS Safety Report 14664912 (Version 2)
Quarter: 2018Q1

REPORT INFORMATION
  Report Type: Spontaneous
  Country: DE (occurrence: DE)
  Receive Date: 20180321
  Receipt Date: 20180329
  Transmission Date: 20180509
  Serious: Yes (Hospitalization)
  Sender: FDA-Public Use
  Company Number: DE-PFIZER INC-2018112961

PATIENT
  Sex: Male

DRUGS (2)
  1. FOLIC ACID. [Concomitant]
     Active Substance: FOLIC ACID
     Dosage: 5 MG, UNK (ON THE DAY AFTER METHOTREXATE ADMINISTRATION)
  2. METHOTREXATE SODIUM. [Suspect]
     Active Substance: METHOTREXATE SODIUM
     Indication: IMMUNE THROMBOCYTOPENIC PURPURA
     Dosage: 150 MG, WEEKLY
     Route: 048

REACTIONS (3)
  - Prescribed overdose [Unknown]
  - Colitis ischaemic [Not Recovered/Not Resolved]
  - Product use in unapproved indication [Unknown]
